FAERS Safety Report 16325272 (Version 1)
Quarter: 2019Q2

REPORT INFORMATION
  Report Type: Spontaneous
  Country: US (occurrence: US)
  Receive Date: 20190516
  Receipt Date: 20190516
  Transmission Date: 20190711
  Serious: No
  Sender: FDA-Public Use
  Company Number: None

PATIENT
  Age: 84 Year
  Sex: Male
  Weight: 87 kg

DRUGS (11)
  1. SPIRONOLACTONE 12.5 MG DAILY [Concomitant]
  2. LATANOPROST 0.005% 1 DROP BOTH EYES TWICE DAILY [Concomitant]
  3. ALLOPURINOL 300 MG DAILY [Concomitant]
  4. OCUVITE DAILY [Concomitant]
  5. FUROSEMIDE 80 MG DAILY [Concomitant]
  6. POTASSIUM 40 MEQ 3 TIMES DAILY [Concomitant]
  7. METOLAZONE 2.5 MG 3 TIMES WEEKLY [Concomitant]
  8. ASPIRIN 81 MG DAILY [Concomitant]
  9. SIMVASTATIN 20 MG DAILY [Concomitant]
  10. WARFARIN [Suspect]
     Active Substance: WARFARIN
     Indication: ATRIAL FIBRILLATION
     Route: 048
  11. MULTIVITAMIN DAILY [Concomitant]

REACTIONS (2)
  - Gastrointestinal haemorrhage [None]
  - Iron deficiency anaemia [None]

NARRATIVE: CASE EVENT DATE: 20190328
